FAERS Safety Report 15549632 (Version 4)
Quarter: 2022Q1

REPORT INFORMATION
  Report Type: Spontaneous
  Country: PT (occurrence: PT)
  Receive Date: 20181025
  Receipt Date: 20220322
  Transmission Date: 20220423
  Serious: Yes (Hospitalization, Other)
  Sender: FDA-Public Use
  Company Number: None

PATIENT
  Age: 38 Year
  Sex: Female

DRUGS (5)
  1. CARBAMAZEPINE [Suspect]
     Active Substance: CARBAMAZEPINE
     Indication: Epilepsy
     Dosage: UNK
     Route: 065
  2. PHENYTOIN [Suspect]
     Active Substance: PHENYTOIN
     Indication: Epilepsy
     Dosage: UNK
     Route: 065
  3. NAPROXEN [Suspect]
     Active Substance: NAPROXEN
     Indication: Swelling
     Dosage: UNK
     Route: 065
  4. WARFARIN [Suspect]
     Active Substance: WARFARIN
     Indication: Cerebral venous sinus thrombosis
     Dosage: UNK
     Route: 016
  5. WARFARIN [Suspect]
     Active Substance: WARFARIN
     Indication: Venous thrombosis

REACTIONS (8)
  - Stevens-Johnson syndrome [Unknown]
  - Ocular discomfort [Unknown]
  - Rash maculo-papular [Unknown]
  - Eyelid oedema [Unknown]
  - Respiratory distress [Unknown]
  - Pyrexia [Unknown]
  - Blister [Unknown]
  - Tachycardia [Unknown]
